FAERS Safety Report 8645985 (Version 7)
Quarter: 2013Q4

REPORT INFORMATION
  Report Type: Spontaneous
  Country: US (occurrence: US)
  Receive Date: 20120702
  Receipt Date: 20131219
  Transmission Date: 20140711
  Serious: Yes (Hospitalization, Disabling, Other)
  Sender: FDA-Public Use
  Company Number: US-MERCK-1206USA04710

PATIENT
  Sex: Female
  Weight: 167.8 kg

DRUGS (3)
  1. FOSAMAX [Suspect]
     Indication: OSTEOPOROSIS
     Dosage: 70 MG, QW
     Route: 048
     Dates: end: 20100601
  2. FOSAMAX PLUS D [Suspect]
     Indication: OSTEOPOROSIS
     Dosage: 70 MG, QW
     Route: 048
     Dates: end: 20100601
  3. ACTONEL [Concomitant]
     Indication: OSTEOPOROSIS

REACTIONS (34)
  - Femur fracture [Not Recovered/Not Resolved]
  - Closed fracture manipulation [Unknown]
  - External fixation of fracture [Unknown]
  - Osteoporosis [Not Recovered/Not Resolved]
  - Stress fracture [Not Recovered/Not Resolved]
  - Low turnover osteopathy [Not Recovered/Not Resolved]
  - Femur fracture [Not Recovered/Not Resolved]
  - Haemorrhagic stroke [Not Recovered/Not Resolved]
  - Hemiparesis [Not Recovered/Not Resolved]
  - Convulsion [Unknown]
  - Humerus fracture [Unknown]
  - Brain operation [Unknown]
  - Thyroidectomy [Unknown]
  - Lower limb fracture [Unknown]
  - Intramedullary rod insertion [Unknown]
  - Open reduction of fracture [Unknown]
  - Affect lability [Unknown]
  - Medical device removal [Unknown]
  - Post procedural infection [Unknown]
  - Osteosclerosis [Unknown]
  - Osteoarthritis [Unknown]
  - Fibromyalgia [Unknown]
  - Bursitis [Unknown]
  - Multiple fractures [Unknown]
  - Depression [Unknown]
  - Anxiety [Unknown]
  - Hypothyroidism [Unknown]
  - Neuropathy peripheral [Unknown]
  - Hypertension [Unknown]
  - Dyspnoea exertional [Unknown]
  - Cardiac failure [Unknown]
  - Oedema peripheral [Not Recovered/Not Resolved]
  - Gastrooesophageal reflux disease [Unknown]
  - Ankle fracture [Unknown]
